FAERS Safety Report 17478235 (Version 1)
Quarter: 2020Q1

REPORT INFORMATION
  Report Type: Spontaneous
  Country: US (occurrence: US)
  Receive Date: 20200228
  Receipt Date: 20200228
  Transmission Date: 20200409
  Serious: No
  Sender: FDA-Public Use
  Company Number: US-ABBVIE-19S-163-2723685-00

PATIENT
  Sex: Male

DRUGS (3)
  1. DEPAKENE [Suspect]
     Active Substance: VALPROIC ACID
     Indication: MANIA
     Dosage: SWITCHED TWICE FROM DEPAKENE TO GENERIC
     Route: 065
  2. DEPAKENE [Suspect]
     Active Substance: VALPROIC ACID
     Indication: MANIA
     Route: 065
  3. VERSACLOZ [Concomitant]
     Active Substance: CLOZAPINE
     Indication: MANIA

REACTIONS (1)
  - Mania [Recovered/Resolved]
